FAERS Safety Report 5977474-8 (Version None)
Quarter: 2008Q4

REPORT INFORMATION
  Report Type: 
  Country: None (occurrence: None)
  Receive Date: 20081203
  Receipt Date: 20081201
  Transmission Date: 20090506
  Serious: Yes (Hospitalization)
  Sender: FDA-Public Use
  Company Number: US-EISAI MEDICAL RESEARCH-E2090-00602-SPO-US

PATIENT
  Sex: Male

DRUGS (6)
  1. ZONEGRAN [Suspect]
     Indication: CONVULSION
     Route: 048
     Dates: start: 20060101, end: 20080728
  2. RISPERDAL [Concomitant]
  3. KLONOPIN [Concomitant]
  4. TOFRANIL [Concomitant]
  5. LUVOX [Concomitant]
  6. LUNESTA [Concomitant]

REACTIONS (5)
  - APNOEA [None]
  - EMPYEMA [None]
  - FATIGUE [None]
  - PNEUMONIA [None]
  - PULMONARY OEDEMA [None]
